FAERS Safety Report 9193517 (Version 3)
Quarter: 2013Q2

REPORT INFORMATION
  Report Type: Report from Study
  Country: GB (occurrence: GB)
  Receive Date: 20130327
  Receipt Date: 20130612
  Transmission Date: 20140414
  Serious: Yes (Hospitalization)
  Sender: FDA-Public Use
  Company Number: GB-PFIZER INC-2013095718

PATIENT
  Age: 44 Year
  Sex: Female
  Weight: 69.3 kg

DRUGS (9)
  1. EPIRUBICIN HCL [Suspect]
     Indication: HER-2 POSITIVE BREAST CANCER
     Dosage: 172 MG, EVERY 3 WEEKS, ONCE
     Route: 042
     Dates: start: 20130220
  2. CYCLOPHOSPHAMIDE [Suspect]
     Indication: HER-2 POSITIVE BREAST CANCER
     Dosage: 860 MG, EVERY 3 WEEKS, ONCE
     Route: 042
     Dates: start: 20130220
  3. FLUOROURACIL [Suspect]
     Indication: HER-2 POSITIVE BREAST CANCER
     Dosage: 850 MG, EVERY 3 WEEKS, ONCE
     Route: 042
     Dates: start: 20130220
  4. BLINDED THERAPY [Suspect]
     Indication: HER-2 POSITIVE BREAST CANCER
     Route: 042
  5. PEGFILGRASTIM [Concomitant]
     Dosage: 6 MG, UNK
     Route: 058
     Dates: start: 20130221, end: 20130221
  6. DEXAMETHASONE [Concomitant]
     Dosage: 8 MG, UNK
     Route: 048
     Dates: start: 20130220, end: 20130223
  7. METOCLOPRAMIDE [Concomitant]
     Dosage: 10 MG, UNK
     Route: 048
     Dates: start: 20130220
  8. ONDANSETRON [Concomitant]
     Dosage: 8 MG, UNK
     Route: 048
     Dates: start: 20130220
  9. APREPITANT [Concomitant]
     Dosage: UNK
     Dates: start: 20130220, end: 20130220

REACTIONS (1)
  - Chest pain [Recovered/Resolved]
